FAERS Safety Report 8415667-0 (Version None)
Quarter: 2012Q2

REPORT INFORMATION
  Report Type: 
  Country: None (occurrence: None)
  Receive Date: 20120606
  Receipt Date: 20120529
  Transmission Date: 20120825
  Serious: Yes (Death, Hospitalization)
  Sender: FDA-Public Use
  Company Number: US-JNJFOC-20110902934

PATIENT
  Sex: Female

DRUGS (10)
  1. OMEPRAZOLE [Concomitant]
     Route: 065
  2. KETOROLAC TROMETHAMINE [Concomitant]
     Route: 065
  3. TRAZODONE HCL [Concomitant]
     Route: 065
  4. CYCLOBENZAPRINE [Concomitant]
  5. ACETAMINOPHEN [Suspect]
     Indication: JOINT INJURY
     Dosage: TAKEN FOR 2-3 WEEKS OF UNKNOWN AMOUNTS
     Dates: start: 20100601
  6. ACETAMINOPHEN [Suspect]
     Indication: PYREXIA
     Dosage: TAKEN FOR 2-3 WEEKS OF UNKNOWN AMOUNTS
     Dates: start: 20100601
  7. MELOXICAM [Concomitant]
     Route: 065
  8. ALL OTHER THERAPEUTIC PRODUCTS [Concomitant]
     Route: 065
  9. ACETAMINOPHEN [Suspect]
     Indication: PAIN
     Dosage: TAKEN FOR 2-3 WEEKS OF UNKNOWN AMOUNTS
     Dates: start: 20100601
  10. IBUPROFEN (ADVIL) [Suspect]
     Indication: JOINT INJURY
     Route: 048

REACTIONS (6)
  - ACUTE HEPATIC FAILURE [None]
  - SUICIDE ATTEMPT [None]
  - OVERDOSE [None]
  - RENAL FAILURE ACUTE [None]
  - UPPER GASTROINTESTINAL HAEMORRHAGE [None]
  - TOXICITY TO VARIOUS AGENTS [None]
